FAERS Safety Report 9039055 (Version 1)
Quarter: 2013Q1

REPORT INFORMATION
  Report Type: Spontaneous
  Country: US (occurrence: None)
  Receive Date: 20130122
  Receipt Date: 20130122
  Transmission Date: 20140127
  Serious: No
  Sender: FDA-Public Use
  Company Number: None

PATIENT
  Age: 59 Year
  Sex: Female
  Weight: 85.28 kg

DRUGS (1)
  1. MONTELUKAST SOD [Suspect]
     Dosage: 1 TABLET, DAILY, PO
     Route: 048
     Dates: start: 20121017, end: 20130118

REACTIONS (3)
  - Sinusitis [None]
  - Therapeutic response unexpected with drug substitution [None]
  - Product substitution issue [None]
